FAERS Safety Report 13670558 (Version 2)
Quarter: 2017Q2

REPORT INFORMATION
  Report Type: Report from Study
  Country: FR (occurrence: FR)
  Receive Date: 20170620
  Receipt Date: 20170621
  Transmission Date: 20170830
  Serious: Yes (Hospitalization)
  Sender: FDA-Public Use
  Company Number: FR-EXELIXIS-XL18417009340

PATIENT
  Age: 75 Year
  Sex: Male
  Weight: 65 kg

DRUGS (19)
  1. GAVISCON [Concomitant]
     Active Substance: ALUMINUM HYDROXIDE\MAGNESIUM CARBONATE
  2. OROZAMUDOL [Concomitant]
     Active Substance: TRAMADOL
  3. BISOCE [Concomitant]
     Active Substance: BISOPROLOL
  4. AVODART [Concomitant]
     Active Substance: DUTASTERIDE
  5. BROPAN [Concomitant]
  6. CRESTOR [Concomitant]
     Active Substance: ROSUVASTATIN CALCIUM
  7. IMODIUM [Concomitant]
     Active Substance: LOPERAMIDE HYDROCHLORIDE
  8. BLINDED XL184 [Suspect]
     Active Substance: CABOZANTINIB
     Indication: MEDULLARY THYROID CANCER
     Dosage: UNK
     Route: 048
     Dates: start: 20170518, end: 20170605
  9. VALSARTAN. [Concomitant]
     Active Substance: VALSARTAN
  10. OMEXEL [Concomitant]
     Active Substance: TAMSULOSIN HYDROCHLORIDE
  11. CALCIDOSE [Concomitant]
     Active Substance: CALCIUM CARBONATE
  12. UVEDOSE [Concomitant]
     Active Substance: CHOLECALCIFEROL
  13. LANSOPRAZOLE. [Concomitant]
     Active Substance: LANSOPRAZOLE
  14. PRIMPERAN [Concomitant]
     Active Substance: METOCLOPRAMIDE HYDROCHLORIDE
  15. FRESUBIN [Concomitant]
     Active Substance: AMINO ACIDS\DEXTROSE\ELECTROLYTES NOS\SOYBEAN OIL\VITAMINS
  16. BLINDED XL184 [Suspect]
     Active Substance: CABOZANTINIB
     Indication: MEDULLARY THYROID CANCER
     Dosage: UNK
     Route: 048
     Dates: start: 20170518, end: 20170605
  17. LEVOTHYROX [Concomitant]
     Active Substance: LEVOTHYROXINE
  18. DOLIPRANE [Concomitant]
     Active Substance: ACETAMINOPHEN
  19. SMECTA [Concomitant]
     Active Substance: MONTMORILLONITE

REACTIONS (1)
  - Abdominal infection [Recovering/Resolving]

NARRATIVE: CASE EVENT DATE: 20170606
